FAERS Safety Report 4709267-3 (Version None)
Quarter: 2005Q3

REPORT INFORMATION
  Report Type: 
  Country: None (occurrence: None)
  Receive Date: 20050705
  Receipt Date: 20050620
  Transmission Date: 20060218
  Serious: Yes (Other)
  Sender: FDA-Public Use
  Company Number: 2005092316

PATIENT
  Sex: Female
  Weight: 55.7924 kg

DRUGS (1)
  1. BENADRYL [Suspect]
     Indication: SINUS DISORDER
     Dosage: ONE KAPSEAL, ORAL
     Route: 048
     Dates: start: 20040101

REACTIONS (2)
  - DIZZINESS [None]
  - LYMPHOMA [None]
